FAERS Safety Report 11424308 (Version 1)
Quarter: 2015Q3

REPORT INFORMATION
  Report Type: Spontaneous
  Country: DE (occurrence: DE)
  Receive Date: 20150827
  Receipt Date: 20150827
  Transmission Date: 20151125
  Serious: Yes (Other)
  Sender: FDA-Public Use
  Company Number: GXKR2015DE004037

PATIENT
  Age: 25 Year
  Sex: Female

DRUGS (2)
  1. DOXYHEXAL [Suspect]
     Active Substance: DOXYCYCLINE
     Indication: CYSTITIS
     Dosage: 100 MG, BID
     Route: 048
     Dates: start: 20150818
  2. DOXYHEXAL [Suspect]
     Active Substance: DOXYCYCLINE
     Indication: KIDNEY INFECTION

REACTIONS (2)
  - Haematochezia [Not Recovered/Not Resolved]
  - Mucous stools [Not Recovered/Not Resolved]

NARRATIVE: CASE EVENT DATE: 20150825
